FAERS Safety Report 9648530 (Version 1)
Quarter: 2013Q4

REPORT INFORMATION
  Report Type: Spontaneous
  Country: AU (occurrence: AU)
  Receive Date: 20131028
  Receipt Date: 20131028
  Transmission Date: 20140711
  Serious: Yes (Other)
  Sender: FDA-Public Use
  Company Number: AU-SA-2013SA106906

PATIENT
  Age: 52 Year
  Sex: Male

DRUGS (4)
  1. ARAVA [Suspect]
     Indication: PRODUCT USED FOR UNKNOWN INDICATION
     Route: 048
  2. ACTEMRA [Suspect]
     Indication: RHEUMATOID ARTHRITIS
     Route: 042
     Dates: start: 20130118, end: 20130531
  3. FENOFIBRATE [Suspect]
     Indication: PRODUCT USED FOR UNKNOWN INDICATION
     Route: 065
  4. METHOTREXATE [Suspect]
     Indication: PRODUCT USED FOR UNKNOWN INDICATION
     Dosage: DOSE:20 UNIT(S)
     Route: 065

REACTIONS (8)
  - Cerebral infarction [Not Recovered/Not Resolved]
  - Aphasia [Unknown]
  - Anxiety [Unknown]
  - Speech disorder [Unknown]
  - Aphasia [Unknown]
  - Oropharyngeal pain [Unknown]
  - Malaise [Unknown]
  - Dyspnoea [Unknown]
